FAERS Safety Report 24395321 (Version 1)
Quarter: 2024Q4

REPORT INFORMATION
  Report Type: Spontaneous
  Country: US (occurrence: US)
  Receive Date: 20241004
  Receipt Date: 20241004
  Transmission Date: 20250115
  Serious: No
  Sender: CELLTRION
  Company Number: US-CELLTRION INC.-2023US023053

PATIENT

DRUGS (1)
  1. INFLECTRA [Suspect]
     Active Substance: INFLIXIMAB-DYYB
     Indication: Hidradenitis
     Dosage: 5 (MG/KG) 400 MG IN 250 ML EVERY 6 WEEKS / NS OVER 2 HOURS (ROUND DOSE UP TO VIAL SIZE: NEAREST 100M
     Route: 065

REACTIONS (1)
  - Intentional product use issue [Unknown]
